FAERS Safety Report 25228980 (Version 2)
Quarter: 2025Q2

REPORT INFORMATION
  Report Type: Report from Study
  Country: US (occurrence: US)
  Receive Date: 20250423
  Receipt Date: 20250514
  Transmission Date: 20250716
  Serious: Yes (Hospitalization, Other)
  Sender: ACADIA PHARMACEUTICALS
  Company Number: US-ACADIA PHARMACEUTICALS INC.-ACA-2025-PIM-004558

PATIENT
  Age: 72 Year
  Sex: Male

DRUGS (13)
  1. NUPLAZID [Suspect]
     Active Substance: PIMAVANSERIN TARTRATE
     Indication: Parkinson^s disease
     Dosage: 34 MILLIGRAM, QD
     Route: 048
     Dates: start: 20230711
  2. INBRIJA [Concomitant]
     Active Substance: LEVODOPA
  3. VITAMINS [Concomitant]
     Active Substance: VITAMINS
  4. ATORVASTATIN [Concomitant]
     Active Substance: ATORVASTATIN
  5. CLONAZEPAM [Concomitant]
     Active Substance: CLONAZEPAM
  6. DONEPEZIL [Concomitant]
     Active Substance: DONEPEZIL
  7. ESCITALOPRAM [Concomitant]
     Active Substance: ESCITALOPRAM OXALATE
  8. FLUDROCORTISONE [Concomitant]
     Active Substance: FLUDROCORTISONE
  9. MELATONIN [Concomitant]
     Active Substance: MELATONIN
  10. MEMANTINE [Concomitant]
     Active Substance: MEMANTINE
  11. RYTARY [Concomitant]
     Active Substance: CARBIDOPA\LEVODOPA
  12. VITAMIN D3 [Concomitant]
     Active Substance: CHOLECALCIFEROL
  13. GOCOVRI [Concomitant]
     Active Substance: AMANTADINE

REACTIONS (1)
  - Gastrointestinal haemorrhage [Not Recovered/Not Resolved]

NARRATIVE: CASE EVENT DATE: 20250401
